APPROVED DRUG PRODUCT: AMPHOTERICIN B
Active Ingredient: AMPHOTERICIN B
Strength: 50MG/VIAL
Dosage Form/Route: INJECTABLE;INJECTION
Application: A064141 | Product #001
Applicant: ABBOTT LABORATORIES
Approved: Dec 23, 1996 | RLD: No | RS: No | Type: DISCN